FAERS Safety Report 9652008 (Version 1)
Quarter: 2013Q4

REPORT INFORMATION
  Report Type: Spontaneous
  Country: BE (occurrence: None)
  Receive Date: 20131025
  Receipt Date: 20131025
  Transmission Date: 20140711
  Serious: Yes (Other)
  Sender: FDA-Public Use
  Company Number: SYM-2013-11801

PATIENT
  Age: 36 Year
  Sex: 0

DRUGS (5)
  1. WELLBUTRIN [Suspect]
     Indication: DEPRESSION
     Dates: start: 201308
  2. TRAZODONE (TRAZODONE) (TRAZODONE) [Concomitant]
  3. TEMESTA (LORAZEPAM) (LORAZEPAM) [Concomitant]
  4. REBIF(INTERFERON BETA-1A) (INTERFERON BETA-1A) [Concomitant]
  5. DAFALGAN (PARACETAMOL) (PARACETAMOL) [Concomitant]

REACTIONS (10)
  - Ulcerative keratitis [None]
  - Nasopharyngitis [None]
  - Sneezing [None]
  - Rhinorrhoea [None]
  - Fatigue [None]
  - Muscular weakness [None]
  - Balance disorder [None]
  - Dizziness [None]
  - Nystagmus [None]
  - Diplopia [None]
